FAERS Safety Report 16141694 (Version 1)
Quarter: 2019Q2

REPORT INFORMATION
  Report Type: Report from Study
  Country: US (occurrence: US)
  Receive Date: 20190401
  Receipt Date: 20190401
  Transmission Date: 20190711
  Serious: No
  Sender: FDA-Public Use
  Company Number: US-CLOVIS ONCOLOGY-CLO-2019-000234

PATIENT
  Sex: Female

DRUGS (1)
  1. RUBRACA [Suspect]
     Active Substance: RUCAPARIB CAMSYLATE
     Indication: OVARIAN CANCER
     Dosage: 600 MG, BID
     Route: 048
     Dates: start: 20190205, end: 20190227

REACTIONS (6)
  - Abdominal pain [Unknown]
  - Nausea [Unknown]
  - Rash generalised [Recovering/Resolving]
  - Hepatic enzyme increased [Unknown]
  - Blood cholesterol increased [Unknown]
  - Dysgeusia [Unknown]

NARRATIVE: CASE EVENT DATE: 2019
